FAERS Safety Report 14325053 (Version 6)
Quarter: 2018Q3

REPORT INFORMATION
  Report Type: Report from Study
  Country: US (occurrence: US)
  Receive Date: 20171226
  Receipt Date: 20180720
  Transmission Date: 20181010
  Serious: Yes (Other)
  Sender: FDA-Public Use
  Company Number: US-CLOVIS ONCOLOGY-CLO-2017-001112

PATIENT
  Age: 58 Year
  Sex: Female

DRUGS (3)
  1. RUBRACA [Suspect]
     Active Substance: RUCAPARIB CAMSYLATE
     Indication: OVARIAN CANCER
     Dosage: 600 MG, BID
     Route: 048
     Dates: start: 20170925, end: 20180308
  2. RUBRACA [Suspect]
     Active Substance: RUCAPARIB CAMSYLATE
     Dosage: 600 MG, BID
     Route: 048
     Dates: start: 20170927, end: 20180308
  3. RUBRACA [Suspect]
     Active Substance: RUCAPARIB CAMSYLATE
     Dosage: 600 MG, BID
     Route: 048
     Dates: start: 20180312

REACTIONS (12)
  - Lung lobectomy [Unknown]
  - Vomiting [Not Recovered/Not Resolved]
  - Temperature intolerance [Unknown]
  - Drug dose omission [Unknown]
  - Fatigue [Unknown]
  - Photosensitivity reaction [Unknown]
  - Metastases to lung [Unknown]
  - Feeling hot [Unknown]
  - Hot flush [Not Recovered/Not Resolved]
  - Abdominal discomfort [Unknown]
  - Nausea [Not Recovered/Not Resolved]
  - Dyspnoea [Recovering/Resolving]

NARRATIVE: CASE EVENT DATE: 2017
